FAERS Safety Report 4973258-8 (Version None)
Quarter: 2006Q2

REPORT INFORMATION
  Report Type: 
  Country: None (occurrence: None)
  Receive Date: 20060414
  Receipt Date: 20060404
  Transmission Date: 20061013
  Serious: Yes (Hospitalization, Other)
  Sender: FDA-Public Use
  Company Number: US-JNJFOC-20060401976

PATIENT
  Sex: Female
  Weight: 117.94 kg

DRUGS (21)
  1. DURAGESIC-100 [Suspect]
     Route: 062
  2. DURAGESIC-100 [Suspect]
     Route: 062
  3. DURAGESIC-100 [Suspect]
     Route: 062
  4. CARDIZEM [Concomitant]
     Indication: BLOOD PRESSURE
     Route: 048
  5. CARDIZEM [Concomitant]
     Route: 048
  6. PLAVIX [Concomitant]
     Route: 048
  7. EFFEXOR [Concomitant]
     Route: 048
  8. PREDNISONE TAB [Concomitant]
     Indication: CHRONIC OBSTRUCTIVE PULMONARY DISEASE
     Route: 048
  9. PREDNISONE TAB [Concomitant]
     Indication: ASTHMA
     Route: 048
  10. VALIUM [Concomitant]
     Indication: DEPRESSION
     Route: 048
  11. COUMADIN [Concomitant]
     Indication: ANTICOAGULANT THERAPY
     Route: 048
  12. FLEXERIL [Concomitant]
     Route: 048
  13. DEMADEX [Concomitant]
     Indication: DIURETIC THERAPY
     Route: 048
  14. ZOCOR [Concomitant]
     Route: 048
  15. NYSTATIN [Concomitant]
     Dosage: OINTMENT AS NEEDED, TOPICAL
     Route: 061
  16. PRILOSEC [Concomitant]
     Indication: GASTROINTESTINAL DISORDER
     Route: 048
  17. NASONEX [Concomitant]
     Route: 045
  18. DYAZIDE [Concomitant]
     Route: 048
  19. DYAZIDE [Concomitant]
     Route: 048
  20. ATROVENT [Concomitant]
     Indication: ASTHMA
     Route: 055
  21. XOPENEX [Concomitant]
     Indication: ASTHMA
     Dosage: AS NEEDED
     Route: 055

REACTIONS (7)
  - BLISTER [None]
  - CHEST PAIN [None]
  - CORONARY ARTERY DISEASE [None]
  - DERMATITIS CONTACT [None]
  - DRUG EFFECT DECREASED [None]
  - FEELING ABNORMAL [None]
  - SOMNOLENCE [None]
